FAERS Safety Report 24757672 (Version 1)
Quarter: 2024Q4

REPORT INFORMATION
  Report Type: Spontaneous
  Country: CA (occurrence: None)
  Receive Date: 20241220
  Receipt Date: 20241220
  Transmission Date: 20250114
  Serious: Yes (Other)
  Sender: ORION
  Company Number: CA-PFIZER INC-202400326896

PATIENT
  Age: 76 Year
  Sex: Female

DRUGS (2)
  1. METHOTREXATE [Suspect]
     Active Substance: METHOTREXATE
     Indication: Product used for unknown indication
  2. ERELZI [Suspect]
     Active Substance: ETANERCEPT-SZZS
     Indication: Rheumatoid arthritis

REACTIONS (4)
  - General physical health deterioration [Unknown]
  - Rheumatoid arthritis [Unknown]
  - Overdose [Unknown]
  - Inappropriate schedule of product administration [Unknown]
